FAERS Safety Report 22271038 (Version 1)
Quarter: 2023Q2

REPORT INFORMATION
  Report Type: Spontaneous
  Country: US (occurrence: US)
  Receive Date: 20230501
  Receipt Date: 20230501
  Transmission Date: 20230721
  Serious: No
  Sender: FDA-Public Use
  Company Number: US-FreseniusKabi-FK202305323

PATIENT
  Age: 62 Year
  Sex: Male

DRUGS (18)
  1. DILAUDID [Suspect]
     Active Substance: HYDROMORPHONE HYDROCHLORIDE
     Indication: Pain
  2. PREDNISONE [Concomitant]
     Active Substance: PREDNISONE
     Indication: Product used for unknown indication
  3. ASPIRIN [Concomitant]
     Active Substance: ASPIRIN
     Indication: Product used for unknown indication
  4. ELIQUIS [Concomitant]
     Active Substance: APIXABAN
     Indication: Product used for unknown indication
  5. Sacubitril Valsartan (Entresto) [Concomitant]
     Indication: Product used for unknown indication
  6. Dapagliflozin propanediol monohydrate (Farxiga) [Concomitant]
     Indication: Product used for unknown indication
  7. Glipizide (Glipizide Xl) [Concomitant]
     Indication: Product used for unknown indication
  8. OXYCODONE [Concomitant]
     Active Substance: OXYCODONE
     Indication: Product used for unknown indication
  9. INSULIN ASPART [Concomitant]
     Active Substance: INSULIN ASPART
     Indication: Product used for unknown indication
  10. LEVEMIR [Concomitant]
     Active Substance: INSULIN DETEMIR
     Indication: Product used for unknown indication
  11. Metoprolol succinate (Metoprolol Succinate Er) [Concomitant]
     Indication: Product used for unknown indication
  12. Pantoprazole Sodium sesquihydrate (Protonix (United States) [Concomitant]
     Indication: Product used for unknown indication
  13. ROSUVASTATIN [Concomitant]
     Active Substance: ROSUVASTATIN
     Indication: Product used for unknown indication
  14. Cyanocobalamin (B12) [Concomitant]
     Indication: Product used for unknown indication
  15. FLEXERIN [Concomitant]
     Indication: Product used for unknown indication
  16. ATIVAN [Concomitant]
     Active Substance: LORAZEPAM
     Indication: Product used for unknown indication
  17. FENTANYL [Concomitant]
     Active Substance: FENTANYL
     Indication: Product used for unknown indication
  18. ACTEMRA [Concomitant]
     Active Substance: TOCILIZUMAB
     Indication: Product used for unknown indication

REACTIONS (5)
  - Confusional state [Recovered/Resolved]
  - Feeling drunk [Recovered/Resolved]
  - Swelling [Recovered/Resolved]
  - Drug ineffective [None]
  - Somnolence [Recovered/Resolved]

NARRATIVE: CASE EVENT DATE: 20230310
